FAERS Safety Report 6108645-8 (Version None)
Quarter: 2009Q1

REPORT INFORMATION
  Report Type: 
  Country: None (occurrence: None)
  Receive Date: 20090305
  Receipt Date: 20090223
  Transmission Date: 20090719
  Serious: Yes (Hospitalization)
  Sender: FDA-Public Use
  Company Number: 2009AL001069

PATIENT
  Age: 80 Year
  Sex: Female

DRUGS (10)
  1. CITALOPRAM HYDROBROMIDE [Suspect]
     Indication: ANXIETY
     Dosage: 20 MG; QD; PO
     Route: 048
  2. ISOSORBIDE DINITRATE [Concomitant]
  3. SPIRONOLACTONE/HYDROCHLOROTHIAZIDE [Concomitant]
  4. SIMVASTATIN [Concomitant]
  5. ACETYLSALICYLIC ACID [Concomitant]
  6. DIGOXIN [Concomitant]
  7. AMLODIPINE [Concomitant]
  8. NITROGLYCERIN [Concomitant]
  9. WARFARIN SODIUM [Concomitant]
  10. PROPAFENONE HCL [Concomitant]

REACTIONS (12)
  - ANAEMIA [None]
  - ATRIAL FIBRILLATION [None]
  - BLOOD CREATININE INCREASED [None]
  - CHEST DISCOMFORT [None]
  - COGNITIVE DISORDER [None]
  - CONTUSION [None]
  - DELIRIUM [None]
  - DEMENTIA [None]
  - DIZZINESS [None]
  - FALL [None]
  - GLOMERULAR FILTRATION RATE DECREASED [None]
  - HEART RATE DECREASED [None]
